FAERS Safety Report 9263347 (Version 1)
Quarter: 2013Q2

REPORT INFORMATION
  Report Type: Spontaneous
  Country: US (occurrence: US)
  Receive Date: 20130430
  Receipt Date: 20130430
  Transmission Date: 20140414
  Serious: No
  Sender: FDA-Public Use
  Company Number: US-ABBOTT-12P-163-0931349-00

PATIENT
  Age: 59 Year
  Sex: Male
  Weight: 83.08 kg

DRUGS (6)
  1. CREON [Suspect]
     Indication: PANCREATIC ENZYMES DECREASED
     Dates: start: 201107
  2. HUMALOG [Concomitant]
     Indication: DIABETES MELLITUS
     Dosage: INSULIN
  3. HUMULIN N [Concomitant]
     Indication: DIABETES MELLITUS
  4. HUMULIN R [Concomitant]
     Indication: DIABETES MELLITUS
  5. CODEINE [Concomitant]
     Indication: PAIN
  6. LORAZEPAM [Concomitant]
     Indication: INSOMNIA

REACTIONS (2)
  - Diarrhoea [Not Recovered/Not Resolved]
  - Flatulence [Not Recovered/Not Resolved]
